FAERS Safety Report 10041255 (Version 2)
Quarter: 2014Q2

REPORT INFORMATION
  Report Type: Report from Study
  Country: US (occurrence: US)
  Receive Date: 20140327
  Receipt Date: 20140421
  Transmission Date: 20141212
  Serious: Yes (Hospitalization)
  Sender: FDA-Public Use
  Company Number: PHEH2014US005921

PATIENT
  Age: 27 Year
  Sex: Male
  Weight: 70.3 kg

DRUGS (1)
  1. TOBI [Suspect]
     Indication: CYSTIC FIBROSIS
     Dosage: 1 DF(1 AMPULE TWICE A DAY FOR 28 DAYS EVERY OTHER MONTH)
     Route: 055

REACTIONS (2)
  - Productive cough [Recovered/Resolved]
  - Pyrexia [Recovered/Resolved]
